FAERS Safety Report 7079515-6 (Version None)
Quarter: 2010Q4

REPORT INFORMATION
  Report Type: 
  Country: None (occurrence: None)
  Receive Date: 20101102
  Receipt Date: 20101020
  Transmission Date: 20110411
  Serious: Yes (Other)
  Sender: FDA-Public Use
  Company Number: JP-AMGEN-JPNCT2010001850

PATIENT
  Sex: Female

DRUGS (11)
  1. REGPARA [Suspect]
     Indication: HYPERPARATHYROIDISM SECONDARY
     Dosage: UNK, QD
     Route: 048
     Dates: start: 20080827, end: 20090211
  2. PHOSBLOCK [Concomitant]
     Dosage: 1500 MG, QD
     Route: 048
     Dates: start: 20101008
  3. OXAROL [Concomitant]
     Dosage: UNK UNK, QD
     Route: 042
     Dates: start: 20031106
  4. AMLODIPINE [Concomitant]
     Dosage: 10 MG, QD
     Route: 048
     Dates: start: 20080930
  5. KINEX                              /00079502/ [Concomitant]
     Dosage: 50 MG, QD
     Dates: start: 20080930
  6. ADEFURONIC [Concomitant]
     Dosage: 75 MG, QD
     Route: 048
     Dates: start: 20080930, end: 20081111
  7. YODEL [Concomitant]
     Dosage: 80 MG, UNK
     Route: 048
     Dates: start: 20080930
  8. HALCION [Concomitant]
     Dosage: 0.25 MG, QD
     Route: 048
     Dates: start: 20080916
  9. CALMESOSYN [Concomitant]
     Dosage: 30 MG, QD
     Route: 048
     Dates: start: 20080902, end: 20081216
  10. CANDESARTAN CILEXETIL [Concomitant]
     Dosage: 8 MG, QD
     Route: 048
     Dates: start: 20080902
  11. TIOSTAR MERCK HOEI [Concomitant]
     Dosage: 10 MG, QD
     Route: 048

REACTIONS (3)
  - ABDOMINAL DISCOMFORT [None]
  - MYOCARDIAL INFARCTION [None]
  - NAUSEA [None]
